FAERS Safety Report 17335239 (Version 1)
Quarter: 2020Q1

REPORT INFORMATION
  Report Type: Spontaneous
  Country: HR (occurrence: HR)
  Receive Date: 20200128
  Receipt Date: 20200128
  Transmission Date: 20200409
  Serious: Yes (Other)
  Sender: FDA-Public Use
  Company Number: HR-ACCORD-170933

PATIENT
  Age: 39 Year
  Sex: Male

DRUGS (1)
  1. ESCITALOPRAM [Suspect]
     Active Substance: ESCITALOPRAM OXALATE
     Dosage: EMPTY BLISTERS ESCITALOPRAM 10 MG (36 TABLETS TOTAL MISSING)
     Route: 048
     Dates: start: 20191008, end: 20191008

REACTIONS (3)
  - Intentional overdose [Unknown]
  - Alcohol poisoning [Unknown]
  - Suicide attempt [Unknown]

NARRATIVE: CASE EVENT DATE: 20191008
